FAERS Safety Report 14913801 (Version 1)
Quarter: 2018Q2

REPORT INFORMATION
  Report Type: Spontaneous
  Country: US (occurrence: US)
  Receive Date: 20180501
  Receipt Date: 20180501
  Transmission Date: 20180711
  Serious: Yes (Hospitalization)
  Sender: FDA-Public Use
  Company Number: None

PATIENT
  Sex: Female

DRUGS (5)
  1. TOBRAMYCIN 300MG/5ML [Suspect]
     Active Substance: TOBRAMYCIN
     Indication: ORAL CANDIDIASIS
     Route: 055
     Dates: start: 20170909
  2. IPROTROPIUM/SOL ALBUTER [Concomitant]
  3. PREDNISONE. [Concomitant]
     Active Substance: PREDNISONE
  4. DIGOXIN. [Concomitant]
     Active Substance: DIGOXIN
  5. SODIUM CHLOR [Concomitant]
     Active Substance: SODIUM CHLORIDE

REACTIONS (1)
  - Intestinal obstruction [None]
